FAERS Safety Report 7639108-6 (Version None)
Quarter: 2011Q3

REPORT INFORMATION
  Report Type: 
  Country: None (occurrence: None)
  Receive Date: 20110727
  Receipt Date: 20110721
  Transmission Date: 20111222
  Serious: Yes (Other)
  Sender: FDA-Public Use
  Company Number: US-AMGEN-USASP2011036576

PATIENT
  Sex: Male

DRUGS (2)
  1. NPLATE [Suspect]
     Indication: PLATELET COUNT DECREASED
     Dosage: 3 A?G/KG, UNK
     Dates: start: 20110715
  2. BONIVA [Concomitant]

REACTIONS (2)
  - DRUG INEFFECTIVE [None]
  - BIOPSY BONE MARROW ABNORMAL [None]
